FAERS Safety Report 9569280 (Version 1)
Quarter: 2013Q3

REPORT INFORMATION
  Report Type: Spontaneous
  Country: US (occurrence: US)
  Receive Date: 20130930
  Receipt Date: 20130930
  Transmission Date: 20140515
  Serious: No
  Sender: FDA-Public Use
  Company Number: US-AMGEN-USASP2013058613

PATIENT
  Age: 66 Year
  Sex: Female
  Weight: 63.49 kg

DRUGS (7)
  1. ENBREL [Suspect]
     Indication: PRODUCT USED FOR UNKNOWN INDICATION
     Dosage: 50 MG, QWK
     Route: 058
  2. FOSAMAX [Concomitant]
     Dosage: 10 MG, UNK
  3. LEUCOVORIN CA [Concomitant]
     Dosage: 10 MG, UNK
  4. METHOTREXATE [Concomitant]
     Dosage: 2.5 MG, UNK
  5. OMEPRAZOLE [Concomitant]
     Dosage: 20 MG, UNK
  6. IBUPROFEN [Concomitant]
     Dosage: 600 MG, UNK
  7. ALBUTEROL                          /00139501/ [Concomitant]
     Dosage: 0.5 %, UNK

REACTIONS (2)
  - Injection site discomfort [Unknown]
  - Injection site pain [Unknown]
